FAERS Safety Report 7430137-4 (Version None)
Quarter: 2011Q2

REPORT INFORMATION
  Report Type: 
  Country: None (occurrence: None)
  Receive Date: 20110421
  Receipt Date: 20100304
  Transmission Date: 20111010
  Serious: No
  Sender: FDA-Public Use
  Company Number: US-ASTRAZENECA-2010SE09444

PATIENT
  Age: 82 Year
  Sex: Female

DRUGS (3)
  1. TOPROL-XL [Suspect]
     Dosage: 50 MILLIGRAMS
     Route: 048
  2. MULTAQ [Suspect]
     Route: 048
     Dates: start: 20100208
  3. DILTIAZEM [Concomitant]

REACTIONS (4)
  - INTENTIONAL DRUG MISUSE [None]
  - HEART RATE INCREASED [None]
  - BLOOD PRESSURE INCREASED [None]
  - MALAISE [None]
